FAERS Safety Report 8934919 (Version 1)
Quarter: 2012Q4

REPORT INFORMATION
  Report Type: 
  Country: BR (occurrence: BR)
  Receive Date: 20121129
  Receipt Date: 20121129
  Transmission Date: 20130627
  Serious: Yes (Other)
  Sender: FDA-Public Use
  Company Number: BR-PFIZER INC-2012294843

PATIENT
  Age: 67 Year
  Sex: Female

DRUGS (4)
  1. XALATAN [Suspect]
     Dosage: UNK
     Dates: start: 1997
  2. COMBIGAN [Concomitant]
  3. COSOPT [Concomitant]
  4. DIAMOX [Concomitant]

REACTIONS (2)
  - Drug ineffective [Unknown]
  - Glaucoma [Unknown]
